FAERS Safety Report 18103172 (Version 1)
Quarter: 2020Q3

REPORT INFORMATION
  Report Type: Spontaneous
  Country: IT (occurrence: IT)
  Receive Date: 20200803
  Receipt Date: 20200803
  Transmission Date: 20201103
  Serious: Yes (Other)
  Sender: FDA-Public Use
  Company Number: IT-TAKEDA-2020TUS033019

PATIENT
  Age: 42 Year
  Sex: Female
  Weight: 60 kg

DRUGS (4)
  1. ASACOL [Concomitant]
     Active Substance: MESALAMINE
     Indication: COLITIS ULCERATIVE
     Dosage: UNK, QD
     Route: 054
  2. TOPSTER [Concomitant]
     Indication: COLITIS ULCERATIVE
     Dosage: 3 MILLIGRAM, 1/WEEK
     Route: 054
  3. ENTYVIO [Suspect]
     Active Substance: VEDOLIZUMAB
     Indication: COLITIS ULCERATIVE
     Dosage: 300 MILLIGRAM
     Route: 042
     Dates: start: 20190705, end: 20200623
  4. MESAVANCOL [Concomitant]
     Active Substance: MESALAMINE
     Indication: COLITIS ULCERATIVE
     Dosage: 1200 MILLIGRAM, QD
     Route: 048

REACTIONS (3)
  - Therapeutic product effect decreased [Unknown]
  - Drug ineffective [Unknown]
  - Colitis ulcerative [Not Recovered/Not Resolved]

NARRATIVE: CASE EVENT DATE: 20200717
